FAERS Safety Report 25266200 (Version 1)
Quarter: 2025Q2

REPORT INFORMATION
  Report Type: Report from Study
  Country: US (occurrence: US)
  Receive Date: 20250504
  Receipt Date: 20250504
  Transmission Date: 20250716
  Serious: Yes (Hospitalization, Other)
  Sender: SANOFI AVENTIS
  Company Number: US-SA-2024SA340164

PATIENT
  Age: 83 Year
  Sex: Female

DRUGS (7)
  1. DUPILUMAB [Suspect]
     Active Substance: DUPILUMAB
     Indication: Nasal polyps
     Dosage: 300 MG, QOW
     Route: 058
     Dates: start: 20221221, end: 202412
  2. DUPILUMAB [Suspect]
     Active Substance: DUPILUMAB
     Dosage: 300 MG, QOW
     Route: 058
  3. FLOVENT [Concomitant]
     Active Substance: FLUTICASONE PROPIONATE
  4. XYLOMETAZOLINE HYDROCHLORIDE [Concomitant]
     Active Substance: XYLOMETAZOLINE HYDROCHLORIDE
  5. ALLERNAZE [Concomitant]
     Active Substance: TRIAMCINOLONE ACETONIDE
  6. 4 WAY FAST ACTING [Concomitant]
     Active Substance: PHENYLEPHRINE HYDROCHLORIDE
  7. OXYBUTYNIN [Suspect]
     Active Substance: OXYBUTYNIN

REACTIONS (4)
  - Rotator cuff syndrome [Recovering/Resolving]
  - Paraplegia [Unknown]
  - Vision blurred [Unknown]
  - Dizziness [Unknown]

NARRATIVE: CASE EVENT DATE: 20241105
